FAERS Safety Report 18237586 (Version 2)
Quarter: 2020Q4

REPORT INFORMATION
  Report Type: Spontaneous
  Country: US (occurrence: US)
  Receive Date: 20200907
  Receipt Date: 20201001
  Transmission Date: 20210113
  Serious: No
  Sender: FDA-Public Use
  Company Number: US-GLAXOSMITHKLINE-US2020178109

PATIENT
  Age: 47 Year
  Sex: Female
  Weight: 124.7 kg

DRUGS (2)
  1. BENLYSTA [Suspect]
     Active Substance: BELIMUMAB
     Indication: SYSTEMIC LUPUS ERYTHEMATOSUS
     Dosage: 1200 MG EVERY 2 WEEKS FOR 3 DOSES
     Route: 042
     Dates: start: 20200609
  2. BENLYSTA [Suspect]
     Active Substance: BELIMUMAB
     Indication: SYSTEMIC LUPUS ERYTHEMATOSUS
     Dosage: 1200 MG, EVERY 4 WEEKS
     Route: 042

REACTIONS (3)
  - Hernia repair [Unknown]
  - Blood urine present [Recovered/Resolved]
  - Product dose omission issue [Unknown]

NARRATIVE: CASE EVENT DATE: 20200903
